FAERS Safety Report 25434337 (Version 2)
Quarter: 2025Q3

REPORT INFORMATION
  Report Type: Report from Study
  Country: US (occurrence: US)
  Receive Date: 20250613
  Receipt Date: 20250810
  Transmission Date: 20251020
  Serious: Yes (Other)
  Sender: ALEXION PHARMACEUTICALS
  Company Number: US-ASTRAZENECA-202506USA009275US

PATIENT
  Age: 59 Year
  Sex: Male

DRUGS (2)
  1. BENRALIZUMAB [Suspect]
     Active Substance: BENRALIZUMAB
     Indication: Asthma
  2. BENRALIZUMAB [Suspect]
     Active Substance: BENRALIZUMAB

REACTIONS (7)
  - Fall [Unknown]
  - Road traffic accident [Unknown]
  - Multiple fractures [Unknown]
  - Limb injury [Unknown]
  - Bone pain [Unknown]
  - Inappropriate schedule of product administration [Unknown]
  - Product use issue [Unknown]

NARRATIVE: CASE EVENT DATE: 20250518
